FAERS Safety Report 23630276 (Version 3)
Quarter: 2024Q2

REPORT INFORMATION
  Report Type: Spontaneous
  Country: US (occurrence: US)
  Receive Date: 20240314
  Receipt Date: 20240620
  Transmission Date: 20240716
  Serious: No
  Sender: FDA-Public Use
  Company Number: US-E2BLSMVVAL-SPO/USA/24/0003846

PATIENT
  Sex: Female

DRUGS (1)
  1. SUMATRIPTAN SUCCINATE [Suspect]
     Active Substance: SUMATRIPTAN SUCCINATE
     Indication: Migraine
     Dosage: 6 MG/0.5 ML
     Route: 058

REACTIONS (5)
  - Injection site haemorrhage [Unknown]
  - Wrong technique in device usage process [Unknown]
  - Poor quality device used [Unknown]
  - Product quality issue [Unknown]
  - Product dose omission issue [Unknown]
